FAERS Safety Report 24950509 (Version 1)
Quarter: 2025Q1

REPORT INFORMATION
  Report Type: Spontaneous
  Country: US (occurrence: US)
  Receive Date: 20250210
  Receipt Date: 20250210
  Transmission Date: 20250409
  Serious: Yes (Death, Hospitalization, Other)
  Sender: MYLAN
  Company Number: US-MYLANLABS-2025M1011703

PATIENT
  Sex: Male

DRUGS (5)
  1. FENTANYL [Suspect]
     Active Substance: FENTANYL
     Indication: Product used for unknown indication
     Route: 065
  2. REMDESIVIR [Suspect]
     Active Substance: REMDESIVIR
     Indication: Product used for unknown indication
     Route: 065
  3. VEKLURY [Suspect]
     Active Substance: REMDESIVIR
     Indication: Product used for unknown indication
     Route: 065
  4. MORPHINE [Suspect]
     Active Substance: MORPHINE
     Indication: Product used for unknown indication
     Route: 065
  5. LORAZEPAM [Suspect]
     Active Substance: LORAZEPAM
     Indication: Product used for unknown indication
     Route: 065

REACTIONS (3)
  - COVID-19 [Fatal]
  - Starvation [Unknown]
  - Dehydration [Unknown]
